FAERS Safety Report 6654868-9 (Version None)
Quarter: 2010Q1

REPORT INFORMATION
  Report Type: 
  Country: None (occurrence: None)
  Receive Date: 20100329
  Receipt Date: 20100318
  Transmission Date: 20100710
  Serious: Yes (Hospitalization)
  Sender: FDA-Public Use
  Company Number: US-BIOGENIDEC-2010BI009026

PATIENT
  Age: 62 Year
  Sex: Female
  Weight: 65 kg

DRUGS (2)
  1. AVONEX [Suspect]
     Indication: MULTIPLE SCLEROSIS
     Route: 030
     Dates: start: 20001101, end: 20030101
  2. AVONEX [Suspect]
     Route: 030
     Dates: start: 20030101

REACTIONS (6)
  - BLOOD PRESSURE INCREASED [None]
  - CARDIAC DISORDER [None]
  - CHEST PAIN [None]
  - HERPES ZOSTER [None]
  - MUSCLE STRAIN [None]
  - PAIN IN EXTREMITY [None]
